FAERS Safety Report 21389108 (Version 2)
Quarter: 2023Q2

REPORT INFORMATION
  Report Type: Report from Study
  Country: TW (occurrence: TW)
  Receive Date: 20220929
  Receipt Date: 20230621
  Transmission Date: 20230722
  Serious: Yes (Hospitalization)
  Sender: FDA-Public Use
  Company Number: TW-ABBVIE-20P-153-3476284-00

PATIENT
  Age: 74 Year
  Sex: Female

DRUGS (16)
  1. PLACEBO [Suspect]
     Active Substance: UNSPECIFIED INGREDIENT
     Indication: Rheumatoid arthritis
     Route: 058
     Dates: start: 20170620, end: 20171208
  2. UPADACITINIB [Suspect]
     Active Substance: UPADACITINIB
     Indication: Rheumatoid arthritis
     Route: 048
     Dates: start: 20170620, end: 20171218
  3. FOLIC ACID [Concomitant]
     Active Substance: FOLIC ACID
     Indication: Vitamin supplementation
     Route: 048
     Dates: start: 20110408
  4. ROSUVASTATIN [Concomitant]
     Active Substance: ROSUVASTATIN
     Indication: Hypertension
     Route: 048
     Dates: start: 20170424
  5. ALDACTIN [Concomitant]
     Indication: Hypertension
     Route: 048
     Dates: start: 20170424
  6. FURIDE [Concomitant]
     Indication: Hypertension
     Route: 048
     Dates: start: 20170424
  7. TAMEDIN [Concomitant]
     Indication: Prophylaxis
     Route: 048
     Dates: start: 20170424
  8. CARVEDILOL [Concomitant]
     Active Substance: CARVEDILOL
     Indication: Hypertension
     Route: 048
     Dates: start: 20170424
  9. LOWTEN [Concomitant]
     Indication: Hypertension
     Route: 048
     Dates: start: 20170424
  10. METFORMIN HYDROCHLORIDE [Concomitant]
     Active Substance: METFORMIN HYDROCHLORIDE
     Indication: Hyperglycaemia
     Dosage: FREQUENCY ODPC
     Route: 048
     Dates: start: 20190706
  11. METHOTREXATE [Concomitant]
     Active Substance: METHOTREXATE
     Indication: Rheumatoid arthritis
     Route: 048
     Dates: start: 20170417
  12. COLCHICINE [Concomitant]
     Active Substance: COLCHICINE
     Indication: Gout
     Route: 048
     Dates: start: 20200630
  13. PEICHIA [Concomitant]
     Indication: Prophylaxis against gastrointestinal ulcer
     Dosage: TIME INTERVAL: 0.33333333 DAYS: DOSAGE: 1 DOSAGE FORM
     Route: 048
     Dates: start: 20200617, end: 20200707
  14. ACETAMINOPHEN [Concomitant]
     Active Substance: ACETAMINOPHEN
     Indication: Back pain
     Route: 048
     Dates: start: 20200617, end: 20200714
  15. UPADACITINIB [Suspect]
     Active Substance: UPADACITINIB
     Indication: Rheumatoid arthritis
     Route: 048
     Dates: start: 20171219, end: 20200709
  16. UPADACITINIB [Suspect]
     Active Substance: UPADACITINIB
     Indication: Rheumatoid arthritis
     Route: 048
     Dates: start: 20200922

REACTIONS (1)
  - Herpes zoster cutaneous disseminated [Recovered/Resolved]

NARRATIVE: CASE EVENT DATE: 20200703
